FAERS Safety Report 5484752-8 (Version None)
Quarter: 2007Q4

REPORT INFORMATION
  Report Type: 
  Country: None (occurrence: None)
  Receive Date: 20071012
  Receipt Date: 20070930
  Transmission Date: 20080405
  Serious: Yes (Other)
  Sender: FDA-Public Use
  Company Number: US-PFIZER INC-2007082585

PATIENT
  Sex: Female
  Weight: 73.9 kg

DRUGS (9)
  1. CHANTIX [Suspect]
     Indication: SMOKING CESSATION THERAPY
  2. LOTREL [Concomitant]
  3. DYAZIDE [Concomitant]
  4. AMARYL [Concomitant]
  5. LIPITOR [Concomitant]
  6. STOOL SOFTENER [Concomitant]
  7. CARAFATE [Concomitant]
  8. VITAMIN CAP [Concomitant]
  9. ALL OTHER THERAPEUTIC PRODUCTS [Concomitant]
     Indication: PAIN

REACTIONS (2)
  - AORTIC SURGERY [None]
  - NAUSEA [None]
